FAERS Safety Report 7402191-7 (Version None)
Quarter: 2011Q1

REPORT INFORMATION
  Report Type: 
  Country: None (occurrence: None)
  Receive Date: 20110330
  Receipt Date: 20110321
  Transmission Date: 20110831
  Serious: Yes (Death)
  Sender: FDA-Public Use
  Company Number: 1000019550

PATIENT
  Age: 63 Year
  Sex: Male

DRUGS (5)
  1. DIPYRONE INJ [Concomitant]
  2. PREDNISOLONE [Concomitant]
  3. ROFLUMILAST (ROFLUMILAST) (TABLETS) [Suspect]
     Indication: CHRONIC OBSTRUCTIVE PULMONARY DISEASE
     Dosage: 500 MCG (500 MCG, 1 IN 1 D),ORAL
     Route: 048
     Dates: start: 20101001, end: 20101010
  4. BUDESONIDE [Concomitant]
  5. XIPAMIDE [Concomitant]

REACTIONS (2)
  - URINARY TRACT INFECTION [None]
  - SUDDEN CARDIAC DEATH [None]
